FAERS Safety Report 20353291 (Version 3)
Quarter: 2023Q2

REPORT INFORMATION
  Report Type: Spontaneous
  Country: US (occurrence: US)
  Receive Date: 20220119
  Receipt Date: 20230619
  Transmission Date: 20230722
  Serious: Yes (Hospitalization, Other)
  Sender: FDA-Public Use
  Company Number: US-GILEAD-2022-0566025

PATIENT
  Age: 43 Year
  Sex: Female
  Weight: 87.09 kg

DRUGS (6)
  1. ATRIPLA [Suspect]
     Active Substance: EFAVIRENZ\EMTRICITABINE\TENOFOVIR DISOPROXIL FUMARATE
     Indication: HIV infection
     Dosage: UNK
     Route: 048
     Dates: start: 2007, end: 2012
  2. EMTRIVA [Concomitant]
     Active Substance: EMTRICITABINE
  3. EPIVIR [Concomitant]
     Active Substance: LAMIVUDINE
  4. ISENTRESS [Concomitant]
     Active Substance: RALTEGRAVIR POTASSIUM
  5. REYATAZ [Concomitant]
     Active Substance: ATAZANAVIR SULFATE
  6. ZIAGEN [Concomitant]
     Active Substance: ABACAVIR SULFATE

REACTIONS (14)
  - Osteoporosis [Unknown]
  - Chronic kidney disease [Unknown]
  - Renal transplant [Unknown]
  - End stage renal disease [Not Recovered/Not Resolved]
  - Renal failure [Unknown]
  - Bone demineralisation [Unknown]
  - Pain [Not Recovered/Not Resolved]
  - Emotional distress [Not Recovered/Not Resolved]
  - Anxiety [Not Recovered/Not Resolved]
  - Anhedonia [Not Recovered/Not Resolved]
  - Proteinuria [Not Recovered/Not Resolved]
  - Anaemia [Not Recovered/Not Resolved]
  - Stoma site infection [Not Recovered/Not Resolved]
  - Fatigue [Not Recovered/Not Resolved]

NARRATIVE: CASE EVENT DATE: 20110801
